FAERS Safety Report 13216332 (Version 1)
Quarter: 2017Q1

REPORT INFORMATION
  Report Type: Spontaneous
  Country: US (occurrence: US)
  Receive Date: 20170210
  Receipt Date: 20170210
  Transmission Date: 20170428
  Serious: No
  Sender: FDA-Public Use
  Company Number: US-ENDO PHARMACEUTICALS INC-2016-002352

PATIENT
  Age: 42 Year
  Sex: Female
  Weight: 59.02 kg

DRUGS (1)
  1. METHSCOPOLAMINE BROMIDE TABLETS 5MG [Suspect]
     Active Substance: METHSCOPOLAMINE BROMIDE
     Indication: ABDOMINAL PAIN UPPER
     Route: 048
     Dates: start: 20160318, end: 20160327

REACTIONS (3)
  - Visual acuity reduced [Not Recovered/Not Resolved]
  - Eye pain [Not Recovered/Not Resolved]
  - Vision blurred [Not Recovered/Not Resolved]

NARRATIVE: CASE EVENT DATE: 20160321
